FAERS Safety Report 19782857 (Version 2)
Quarter: 2022Q1

REPORT INFORMATION
  Report Type: Other
  Country: GB (occurrence: GB)
  Receive Date: 20210902
  Receipt Date: 20220225
  Transmission Date: 20220423
  Serious: No
  Sender: FDA-Public Use
  Company Number: None

PATIENT

DRUGS (27)
  1. TAMOXIFEN CITRATE [Suspect]
     Active Substance: TAMOXIFEN CITRATE
     Indication: Breast cancer metastatic
     Dosage: 20 MG, QD
     Route: 048
     Dates: start: 20170824
  2. DOCETAXEL [Suspect]
     Active Substance: DOCETAXEL
     Indication: Breast cancer metastatic
     Dosage: 200 MG; EVERY 3 WEEKS
     Route: 042
     Dates: start: 20170324
  3. DOCETAXEL [Suspect]
     Active Substance: DOCETAXEL
     Dosage: 180 MG; EVERY 3 WEEKS
     Route: 065
     Dates: start: 20170621, end: 20170711
  4. DOCETAXEL [Suspect]
     Active Substance: DOCETAXEL
     Dosage: 150 MG; EVERY 3 WEEKS
     Route: 065
     Dates: start: 20170712, end: 20170712
  5. TRASTUZUMAB [Suspect]
     Active Substance: TRASTUZUMAB
     Indication: Breast cancer metastatic
     Dosage: 600 MG; EVERY 3 WEEKS
     Route: 058
     Dates: start: 20170324, end: 20210305
  6. CALCIUM CARBONATE [Concomitant]
     Active Substance: CALCIUM CARBONATE
     Indication: Product used for unknown indication
     Dosage: 1 DF, QD
     Route: 065
     Dates: start: 20180801
  7. AMOXICILLIN [Concomitant]
     Active Substance: AMOXICILLIN
     Indication: Product used for unknown indication
     Dosage: 500 MG; EVERY 3 DAYS
     Route: 065
     Dates: start: 20190314
  8. BENZYDAMINE [Concomitant]
     Active Substance: BENZYDAMINE
     Indication: Product used for unknown indication
     Dosage: 10 ML; 1.5-3 HOURLY
     Dates: start: 20170530, end: 20170802
  9. COD LIVER OIL [Concomitant]
     Active Substance: COD LIVER OIL
     Indication: Product used for unknown indication
     Dosage: UNK, QD
     Dates: start: 20171022
  10. SARS-COV-2 VACCINE [Concomitant]
     Indication: Product used for unknown indication
     Dosage: UNK, ONCE
     Route: 065
     Dates: start: 20210206
  11. SARS-COV-2 VACCINE [Concomitant]
     Dosage: UNK, ONCE
     Route: 065
     Dates: start: 20210417
  12. DEXAMETHASONE [Concomitant]
     Active Substance: DEXAMETHASONE
     Indication: Product used for unknown indication
     Dosage: 8 MG
     Dates: start: 20170323, end: 20170622
  13. DEXAMETHASONE [Concomitant]
     Active Substance: DEXAMETHASONE
     Dosage: 2 MG
     Dates: start: 20170324, end: 20170716
  14. DEXAMETHASONE [Concomitant]
     Active Substance: DEXAMETHASONE
     Dosage: 4 MG
     Dates: start: 20170324, end: 20170715
  15. DOMPERIDONE [Concomitant]
     Active Substance: DOMPERIDONE
     Indication: Product used for unknown indication
     Dosage: 10 MG; 3 DAYS
     Dates: start: 20180801
  16. FLUCONAZOLE [Concomitant]
     Active Substance: FLUCONAZOLE
     Indication: Product used for unknown indication
     Dosage: 50 MG, QD
     Route: 065
     Dates: start: 20170530, end: 20170620
  17. GELCLAIR [HYALURONATE SODIUM;POVIDONE] [Concomitant]
     Indication: Product used for unknown indication
     Dosage: DOSE 1 OTHER; 3 DAYS
     Dates: start: 20170414
  18. LOPERAMIDE [Concomitant]
     Active Substance: LOPERAMIDE
     Indication: Product used for unknown indication
     Dosage: 2 MG, PRN
     Dates: start: 20170414
  19. OMEPRAZOLE [Concomitant]
     Active Substance: OMEPRAZOLE
     Indication: Product used for unknown indication
     Dosage: 20 MG, QD
     Dates: start: 20190415
  20. ONDANSETRON [Concomitant]
     Active Substance: ONDANSETRON
     Indication: Product used for unknown indication
     Dosage: 8 MG
     Dates: start: 20170324, end: 20170721
  21. ACETAMINOPHEN [Concomitant]
     Active Substance: ACETAMINOPHEN
     Indication: Product used for unknown indication
     Dosage: 1 G; 4-6 HOURLY AS REQUIRED
     Route: 065
     Dates: start: 20171011
  22. PROCHLORPERAZINE EDISYLATE [Concomitant]
     Active Substance: PROCHLORPERAZINE EDISYLATE
     Indication: Product used for unknown indication
     Dosage: 5 MG, PRN
     Dates: start: 20190129, end: 202102
  23. SERTRALINE [Concomitant]
     Active Substance: SERTRALINE HYDROCHLORIDE
     Indication: Product used for unknown indication
     Dosage: 50 MG, QD
     Route: 065
     Dates: start: 20190415
  24. TRIMETHOPRIM [Concomitant]
     Active Substance: TRIMETHOPRIM
     Indication: Product used for unknown indication
     Dosage: 200 MG; 2 DAYS
     Dates: start: 20200826, end: 20200901
  25. TRIMETHOPRIM [Concomitant]
     Active Substance: TRIMETHOPRIM
     Dosage: 200 MG; 2 DAYS
     Route: 065
     Dates: start: 20200723, end: 20200726
  26. ZEROBASE [PARAFFIN] [Concomitant]
     Indication: Product used for unknown indication
     Dosage: UNK, PRN
     Dates: start: 20170906
  27. FILGRASTIM [Concomitant]
     Active Substance: FILGRASTIM
     Indication: Product used for unknown indication
     Dosage: UNK
     Route: 048
     Dates: start: 20170324, end: 20170719

REACTIONS (1)
  - Fatigue [Recovering/Resolving]

NARRATIVE: CASE EVENT DATE: 20191201
